FAERS Safety Report 21232814 (Version 1)
Quarter: 2022Q3

REPORT INFORMATION
  Report Type: Spontaneous
  Country: US (occurrence: US)
  Receive Date: 20220819
  Receipt Date: 20220819
  Transmission Date: 20221027
  Serious: Yes (Other)
  Sender: FDA-Public Use
  Company Number: US-JNJFOC-20220825501

PATIENT
  Age: 59 Year
  Sex: Female

DRUGS (15)
  1. STELARA [Suspect]
     Active Substance: USTEKINUMAB
     Indication: Colitis ulcerative
     Dosage: 3VIALS TOTALLING 390 MG. FREQUENCY AND FREQUENCY TIME - 1
     Route: 040
     Dates: start: 20220720, end: 20220720
  2. ACETAMINOPHEN [Concomitant]
     Active Substance: ACETAMINOPHEN
  3. VITAMIN B COMPLEX [Concomitant]
     Active Substance: CYANOCOBALAMIN\DEXPANTHENOL\NIACINAMIDE\PYRIDOXINE HYDROCHLORIDE\RIBOFLAVIN 5^-PHOSPHATE SODIUM\THIA
     Dosage: PO
     Route: 048
  4. CALCIUM CARBONATE [Concomitant]
     Active Substance: CALCIUM CARBONATE
     Dosage: 600MG PO
     Route: 048
  5. VITAMIN D3 [Concomitant]
     Active Substance: CHOLECALCIFEROL
     Dosage: 25MCG (1000UNIT)
  6. DENOSUMAB [Concomitant]
     Active Substance: DENOSUMAB
     Dosage: (PROLIA-60MG/ML)
  7. FERROUS SULFATE [Concomitant]
     Active Substance: FERROUS SULFATE
     Dosage: FERROUS SULFATE 325 (65 FE) MG ORAL TAB.
     Route: 048
  8. FLUTICASONE PROPIONATE [Concomitant]
     Active Substance: FLUTICASONE PROPIONATE
     Dosage: 50 MCG/ACT NASAL SUSPENSION
     Route: 045
  9. FOLIC ACID [Concomitant]
     Active Substance: FOLIC ACID
     Route: 048
  10. GABAPENTIN [Concomitant]
     Active Substance: GABAPENTIN
  11. IBUPROFEN [Concomitant]
     Active Substance: IBUPROFEN
  12. METRONIDAZOLE [Concomitant]
     Active Substance: METRONIDAZOLE
  13. NITROGLYCERIN [Concomitant]
     Active Substance: NITROGLYCERIN
     Dosage: 0.4 MG SL TAB
     Route: 048
  14. OMEPRAZOLE [Concomitant]
     Active Substance: OMEPRAZOLE
     Dosage: 40 MG ORAL DELAYED RELEASE CAPSULE
     Route: 048
  15. LIDOCAINE\PRILOCAINE [Concomitant]
     Active Substance: LIDOCAINE\PRILOCAINE

REACTIONS (2)
  - Rash [Unknown]
  - Chest discomfort [Unknown]

NARRATIVE: CASE EVENT DATE: 20220720
